FAERS Safety Report 18624242 (Version 1)
Quarter: 2020Q4

REPORT INFORMATION
  Report Type: Spontaneous
  Country: US (occurrence: US)
  Receive Date: 20201216
  Receipt Date: 20201216
  Transmission Date: 20210114
  Serious: Yes (Hospitalization)
  Sender: FDA-Public Use
  Company Number: US-GENERICUS, INC.-2020GNR00041

PATIENT
  Sex: Male

DRUGS (1)
  1. TOBRAMYCIN. [Suspect]
     Active Substance: TOBRAMYCIN
     Indication: CYSTIC FIBROSIS
     Dosage: 300 MG/5 ML, 2X/DAY FOR 28 DAYS ON AND 28 DAYS OFF
     Dates: start: 201906

REACTIONS (1)
  - Hospitalisation [Not Recovered/Not Resolved]
